FAERS Safety Report 5529215-6 (Version None)
Quarter: 2007Q4

REPORT INFORMATION
  Report Type: 
  Country: None (occurrence: None)
  Receive Date: 20071129
  Receipt Date: 20070627
  Transmission Date: 20080405
  Serious: No
  Sender: FDA-Public Use
  Company Number: A0660327A

PATIENT
  Age: 71 Year
  Sex: Female

DRUGS (4)
  1. WELLBUTRIN SR [Suspect]
     Dosage: 150MG PER DAY
     Route: 048
  2. METOPROLOL [Concomitant]
  3. LISINOPRIL [Concomitant]
  4. ASPIRIN [Concomitant]

REACTIONS (1)
  - AGITATION [None]
